FAERS Safety Report 7985540-0 (Version None)
Quarter: 2011Q4

REPORT INFORMATION
  Report Type: 
  Country: None (occurrence: None)
  Receive Date: 20111214
  Receipt Date: 20111129
  Transmission Date: 20120403
  Serious: Yes (Death, Other)
  Sender: FDA-Public Use
  Company Number: 2011SP010657

PATIENT
  Age: 63 Year
  Sex: Male
  Weight: 90 kg

DRUGS (3)
  1. RADIOTHERAPY (THERAPEUTIC RADIOPHARMACEUTICALS) [Suspect]
     Indication: GLIOBLASTOMA
     Dosage: 60 DF
     Dates: start: 20061123, end: 20070105
  2. DEXAMETHASONE [Concomitant]
  3. TEMODAL [Suspect]
     Indication: GLIOBLASTOMA
     Dosage: 160 MG;QD;PO
     Route: 048
     Dates: start: 20061123, end: 20061227

REACTIONS (3)
  - PANCYTOPENIA [None]
  - HEPATIC ENZYME INCREASED [None]
  - TOXICITY TO VARIOUS AGENTS [None]
